FAERS Safety Report 22311385 (Version 1)
Quarter: 2023Q2

REPORT INFORMATION
  Report Type: Spontaneous
  Country: FR (occurrence: FR)
  Receive Date: 20230511
  Receipt Date: 20230511
  Transmission Date: 20230721
  Serious: Yes (Hospitalization, Other)
  Sender: FDA-Public Use
  Company Number: None

PATIENT
  Age: 72 Year
  Sex: Female

DRUGS (3)
  1. PEMBROLIZUMAB [Suspect]
     Active Substance: PEMBROLIZUMAB
     Indication: Triple negative breast cancer
     Route: 042
     Dates: start: 20221026
  2. CARBOPLATIN [Concomitant]
     Active Substance: CARBOPLATIN
     Indication: Breast cancer
     Route: 042
  3. TAXOL [Concomitant]
     Active Substance: PACLITAXEL
     Indication: Breast cancer
     Route: 042

REACTIONS (2)
  - Hepatitis B reactivation [Recovering/Resolving]
  - Immune-mediated cholangitis [Recovered/Resolved]

NARRATIVE: CASE EVENT DATE: 20230127
